FAERS Safety Report 20939571 (Version 1)
Quarter: 2022Q2

REPORT INFORMATION
  Report Type: Spontaneous
  Country: US (occurrence: None)
  Receive Date: 20220609
  Receipt Date: 20220609
  Transmission Date: 20220721
  Serious: Yes (Hospitalization)
  Sender: FDA-Public Use
  Company Number: None

PATIENT
  Sex: Female
  Weight: 14.7 kg

DRUGS (3)
  1. BLEOMYCIN [Suspect]
     Active Substance: BLEOMYCIN SULFATE
  2. CISPLATIN [Concomitant]
     Active Substance: CISPLATIN
  3. ETOPOSIDE [Concomitant]
     Active Substance: ETOPOSIDE

REACTIONS (7)
  - COVID-19 [None]
  - Pyrexia [None]
  - Escherichia bacteraemia [None]
  - Postoperative wound infection [None]
  - Tachycardia [None]
  - Rhinovirus infection [None]
  - Enterovirus infection [None]

NARRATIVE: CASE EVENT DATE: 20220606
